FAERS Safety Report 21110781 (Version 1)
Quarter: 2022Q3

REPORT INFORMATION
  Report Type: Report from Study
  Country: US (occurrence: US)
  Receive Date: 20220721
  Receipt Date: 20220721
  Transmission Date: 20221027
  Serious: Yes (Hospitalization, Other)
  Sender: FDA-Public Use
  Company Number: US-HLS-202200827

PATIENT

DRUGS (1)
  1. CLOZAPINE [Suspect]
     Active Substance: CLOZAPINE
     Indication: Product used for unknown indication
     Dosage: 25 MG AT BEDTIME DAILY FROM JULY 06,2022
     Route: 048

REACTIONS (5)
  - Aggression [Unknown]
  - Bipolar disorder [Unknown]
  - Off label use [Not Recovered/Not Resolved]
  - Intentional self-injury [Unknown]
  - Suicidal ideation [Unknown]
